FAERS Safety Report 10866541 (Version 1)
Quarter: 2015Q1

REPORT INFORMATION
  Report Type: Spontaneous
  Country: US (occurrence: None)
  Receive Date: 20150220
  Receipt Date: 20150220
  Transmission Date: 20150721
  Serious: Yes (Disabling)
  Sender: FDA-Public Use
  Company Number: None

PATIENT
  Age: 58 Year
  Sex: Female
  Weight: 72.58 kg

DRUGS (1)
  1. MYRBETRIQ [Suspect]
     Active Substance: MIRABEGRON
     Indication: HYPERTONIC BLADDER
     Route: 048
     Dates: start: 20150113, end: 20150216

REACTIONS (7)
  - Joint swelling [None]
  - Peripheral swelling [None]
  - Arthralgia [None]
  - Pain in extremity [None]
  - Fluid retention [None]
  - Drug ineffective [None]
  - Swelling [None]

NARRATIVE: CASE EVENT DATE: 20150127
